FAERS Safety Report 13483239 (Version 1)
Quarter: 2017Q2

REPORT INFORMATION
  Report Type: Report from Study
  Country: US (occurrence: US)
  Receive Date: 20170426
  Receipt Date: 20170426
  Transmission Date: 20170830
  Serious: Yes (Hospitalization, Other)
  Sender: FDA-Public Use
  Company Number: US-GILEAD-2017-0269269

PATIENT
  Age: 33 Year
  Sex: Female

DRUGS (5)
  1. AMBIEN [Concomitant]
     Active Substance: ZOLPIDEM TARTRATE
  2. LOSARTAN. [Concomitant]
     Active Substance: LOSARTAN
  3. PREDNISONE. [Concomitant]
     Active Substance: PREDNISONE
  4. FISH OIL [Concomitant]
     Active Substance: FISH OIL
  5. AMBRISENTAN [Suspect]
     Active Substance: AMBRISENTAN
     Indication: PULMONARY HYPERTENSION
     Dosage: 5 MG, QD
     Route: 065
     Dates: start: 20170306, end: 20170412

REACTIONS (2)
  - Dyspnoea [Recovered/Resolved]
  - Unevaluable event [Recovered/Resolved]
